FAERS Safety Report 16941089 (Version 2)
Quarter: 2019Q4

REPORT INFORMATION
  Report Type: Report from Study
  Country: ES (occurrence: ES)
  Receive Date: 20191021
  Receipt Date: 20191210
  Transmission Date: 20200122
  Serious: Yes (Life-Threatening, Disabling, Other)
  Sender: FDA-Public Use
  Company Number: ES-PFIZER INC-2019447396

PATIENT
  Age: 59 Year
  Sex: Female
  Weight: 54 kg

DRUGS (13)
  1. TRABECTEDIN [Suspect]
     Active Substance: TRABECTEDIN
     Dosage: 1.1 (UNSPECIFIED UNITS) (CYCLE 5)
     Dates: start: 20180917, end: 20180917
  2. DEXAMETHASONE. [Concomitant]
     Active Substance: DEXAMETHASONE
     Indication: PREMEDICATION
     Dosage: 20 MG, UNK
  3. OMEPRAZOLE. [Concomitant]
     Active Substance: OMEPRAZOLE
     Indication: GASTROINTESTINAL DISORDER THERAPY
     Dosage: 20 (UNIT UNKNOWN), 1X/DAY
     Route: 048
     Dates: start: 20180611, end: 20180630
  4. IBUPROFEN. [Concomitant]
     Active Substance: IBUPROFEN
     Indication: ANALGESIC THERAPY
     Dosage: 400 (UNIT UNKNOWN), 2X/DAY
     Route: 048
     Dates: start: 20180611, end: 20180625
  5. TAPENTADOL [Concomitant]
     Active Substance: TAPENTADOL
     Indication: ANALGESIC THERAPY
     Dosage: 75.0 (UNIT UNKNOWN), 2X/DAY
     Route: 048
     Dates: start: 20180611, end: 20180620
  6. TRABECTEDIN [Suspect]
     Active Substance: TRABECTEDIN
     Dosage: 1.3 (UNSPECIFIED UNITS) (CYCLE 4)
     Route: 042
     Dates: start: 20180813, end: 20180813
  7. DOXORUBICIN HCL [Suspect]
     Active Substance: DOXORUBICIN HYDROCHLORIDE
     Dosage: 35 (UNSPECIFIED UNITS) (CYCLE 4)
     Dates: start: 20180813, end: 20180813
  8. DOXORUBICIN HCL [Suspect]
     Active Substance: DOXORUBICIN HYDROCHLORIDE
     Dosage: 30 (UNSPECIFIED UNITS) CYCLIC (CYCLE 5)
     Dates: start: 20180917, end: 20180917
  9. TRABECTEDIN [Suspect]
     Active Substance: TRABECTEDIN
     Indication: OVARIAN CANCER RECURRENT
     Dosage: 1.7 (UNIT UNKNOWN), CYCLIC
     Route: 042
     Dates: start: 20180528, end: 20180528
  10. TRABECTEDIN [Suspect]
     Active Substance: TRABECTEDIN
     Dosage: 1.3 (UNSPECIFIED UNITS), CYCLIC (CYCLE 2)
     Route: 042
     Dates: start: 20180627, end: 20180627
  11. IBUPROFEN. [Concomitant]
     Active Substance: IBUPROFEN
     Indication: ANTIINFLAMMATORY THERAPY
     Dosage: UNK
  12. DOXORUBICIN HCL [Suspect]
     Active Substance: DOXORUBICIN HYDROCHLORIDE
     Dosage: 35 (UNSPECIFIED UNITS) (CYCLE 2)
     Dates: start: 20180627, end: 20180627
  13. DOXORUBICIN HCL [Suspect]
     Active Substance: DOXORUBICIN HYDROCHLORIDE
     Indication: OVARIAN CANCER RECURRENT
     Dosage: 46 (UNKNOWN UNIT), CYCLIC
     Route: 042
     Dates: start: 20180528, end: 20180528

REACTIONS (8)
  - Neutropenia [Recovered/Resolved]
  - Fatigue [Recovered/Resolved]
  - Neutropenia [Recovered/Resolved]
  - Sinusitis [Recovered/Resolved]
  - Neutropenia [Recovered/Resolved]
  - Vomiting [Recovered/Resolved]
  - Diarrhoea [Recovered/Resolved]
  - Malaise [Recovered/Resolved]

NARRATIVE: CASE EVENT DATE: 20180604
